FAERS Safety Report 7919001-1 (Version None)
Quarter: 2011Q4

REPORT INFORMATION
  Report Type: 
  Country: None (occurrence: None)
  Receive Date: 20111116
  Receipt Date: 20111107
  Transmission Date: 20120403
  Serious: Yes (Disabling)
  Sender: FDA-Public Use
  Company Number: CA-ASTRAZENECA-2011SE67204

PATIENT
  Age: 54 Year
  Sex: Female
  Weight: 70.3 kg

DRUGS (4)
  1. SYNTHROID [Concomitant]
  2. GLUMETZA [Concomitant]
  3. DIABETA [Concomitant]
  4. CRESTOR [Suspect]
     Route: 048

REACTIONS (3)
  - TRIGGER FINGER [None]
  - VISION BLURRED [None]
  - MYALGIA [None]
